FAERS Safety Report 9971468 (Version 1)
Quarter: 2014Q1

REPORT INFORMATION
  Report Type: Report from Study
  Country: US (occurrence: US)
  Receive Date: 20140306
  Receipt Date: 20140306
  Transmission Date: 20141002
  Serious: No
  Sender: FDA-Public Use
  Company Number: US-ABBVIE-13P-163-1152720-00

PATIENT
  Age: 51 Year
  Sex: Female

DRUGS (5)
  1. HUMIRA [Suspect]
     Indication: CROHN^S DISEASE
     Dates: start: 20130810, end: 20130810
  2. HUMIRA [Suspect]
     Dates: start: 20130824, end: 20130824
  3. HUMIRA [Suspect]
     Dosage: DISCONTINUED
     Dates: start: 20130907
  4. ENALAPRIL [Concomitant]
     Indication: HYPERTENSION
     Dosage: 15 MG DAILY
  5. PREMARIN [Concomitant]
     Indication: PRODUCT USED FOR UNKNOWN INDICATION
     Dosage: ^TITRATING PREMARIN DOWN^

REACTIONS (5)
  - Nasal congestion [Not Recovered/Not Resolved]
  - Oropharyngeal pain [Not Recovered/Not Resolved]
  - Dysphagia [Not Recovered/Not Resolved]
  - Hypoaesthesia [Not Recovered/Not Resolved]
  - Paraesthesia [Not Recovered/Not Resolved]
